FAERS Safety Report 10264374 (Version 1)
Quarter: 2014Q2

REPORT INFORMATION
  Report Type: Spontaneous
  Country: GB (occurrence: GB)
  Receive Date: 20140627
  Receipt Date: 20140627
  Transmission Date: 20141212
  Serious: Yes (Life-Threatening, Hospitalization)
  Sender: FDA-Public Use
  Company Number: GB-ASTRAZENECA-2014SE46263

PATIENT
  Age: 55 Year
  Sex: Male

DRUGS (5)
  1. BRILIQUE [Suspect]
     Indication: ACUTE MYOCARDIAL INFARCTION
     Route: 048
     Dates: start: 20140610, end: 20140615
  2. AMOXICILLIN [Concomitant]
  3. ASPIRIN [Concomitant]
  4. PARACETAMOL [Concomitant]
  5. TENECTEPLASE [Concomitant]

REACTIONS (5)
  - Hypoxia [Unknown]
  - Inflammatory marker increased [Unknown]
  - Alveolitis allergic [Recovering/Resolving]
  - Haemoptysis [Unknown]
  - Pulmonary haemorrhage [Recovering/Resolving]
